FAERS Safety Report 9286045 (Version 1)
Quarter: 2013Q2

REPORT INFORMATION
  Report Type: Spontaneous
  Country: US (occurrence: None)
  Receive Date: 20130510
  Receipt Date: 20130510
  Transmission Date: 20140414
  Serious: Yes (Hospitalization)
  Sender: FDA-Public Use
  Company Number: None

PATIENT
  Age: 54 Year
  Sex: Male
  Weight: 61.2 kg

DRUGS (1)
  1. TRAMADOL [Suspect]
     Indication: PAIN
     Dosage: 1 TAB QID PO
     Dates: start: 20111004, end: 20121128

REACTIONS (3)
  - Convulsion [None]
  - Incorrect dose administered [None]
  - Treatment noncompliance [None]
